FAERS Safety Report 10240883 (Version 1)
Quarter: 2014Q2

REPORT INFORMATION
  Report Type: Spontaneous
  Country: FR (occurrence: FR)
  Receive Date: 20140617
  Receipt Date: 20140617
  Transmission Date: 20141212
  Serious: Yes (Hospitalization, Other)
  Sender: FDA-Public Use
  Company Number: FR-ROCHE-1415659

PATIENT
  Age: 38 Year
  Sex: Male

DRUGS (10)
  1. TRETINOIN [Suspect]
     Indication: ACUTE PROMYELOCYTIC LEUKAEMIA
     Route: 065
  2. CEFTRIAXONE [Concomitant]
     Route: 065
  3. CYTARABINE [Concomitant]
  4. DEXRAZOXANE [Concomitant]
  5. IDARUBICIN [Concomitant]
     Route: 065
  6. PIPERACILLIN/TAZOBACTAM [Concomitant]
     Dosage: DAY 6 TO DAY 11
     Route: 065
  7. VANCOMYCINE [Concomitant]
     Dosage: ON DAY 12 FOR 21 DAYS.
     Route: 065
  8. IMIPENEM/CILASTATIN [Concomitant]
     Dosage: ON DAY 15
     Route: 065
  9. ACYCLOVIR [Concomitant]
  10. VORICONAZOLE [Concomitant]

REACTIONS (1)
  - Retinoic acid syndrome [Recovered/Resolved]
